FAERS Safety Report 17221787 (Version 1)
Quarter: 2020Q1

REPORT INFORMATION
  Report Type: Spontaneous
  Country: CA (occurrence: CA)
  Receive Date: 20200101
  Receipt Date: 20200101
  Transmission Date: 20200409
  Serious: Yes (Other)
  Sender: FDA-Public Use
  Company Number: CA-AUROBINDO-AUR-APL-2019-107474

PATIENT
  Age: 29 Year
  Sex: Female

DRUGS (4)
  1. MEROPENEM INJECTION [Suspect]
     Active Substance: MEROPENEM
     Indication: HEPATIC AMOEBIASIS
     Dosage: UNK
     Route: 065
  2. METRONIDAZOLE. [Suspect]
     Active Substance: METRONIDAZOLE
     Indication: ABSCESS BACTERIAL
  3. METRONIDAZOLE. [Suspect]
     Active Substance: METRONIDAZOLE
     Indication: HEPATIC AMOEBIASIS
     Dosage: UNK
     Route: 065
  4. MEROPENEM INJECTION [Suspect]
     Active Substance: MEROPENEM
     Indication: ABSCESS BACTERIAL

REACTIONS (2)
  - Product use in unapproved indication [Unknown]
  - Clostridium difficile colitis [Unknown]
